FAERS Safety Report 5210228-9 (Version None)
Quarter: 2006Q4

REPORT INFORMATION
  Report Type: 
  Country: None (occurrence: None)
  Receive Date: 20061130
  Receipt Date: 20060807
  Transmission Date: 20070319
  Serious: No
  Sender: FDA-Public Use
  Company Number: 06H-163-0309559-00

PATIENT
  Sex: Female

DRUGS (1)
  1. PROPOFOL [Suspect]
     Indication: ANGIONEUROTIC OEDEMA
     Dosage: INTRAVENOUS
     Route: 042
     Dates: start: 20060807, end: 20060807

REACTIONS (1)
  - ANGIONEUROTIC OEDEMA [None]
